FAERS Safety Report 10074718 (Version 3)
Quarter: 2021Q1

REPORT INFORMATION
  Report Type: Report from Study
  Country: HU (occurrence: HU)
  Receive Date: 20140414
  Receipt Date: 20210212
  Transmission Date: 20210419
  Serious: Yes (Death, Life-Threatening, Hospitalization, Disabling)
  Sender: FDA-Public Use
  Company Number: HU-ROCHE-1155405

PATIENT
  Age: 67 Year
  Sex: Male
  Weight: 47 kg

DRUGS (7)
  1. BENDAMUSTINE [Suspect]
     Active Substance: BENDAMUSTINE
     Indication: NON-HODGKIN^S LYMPHOMA UNSPECIFIED HISTOLOGY INDOLENT
     Dosage: DOSE OF LAST BENDAMUSTINE TAKEN 127 MG, LAST DOSE PRIOR TO SAE 04/JUL/2012
     Route: 042
     Dates: start: 20120213
  2. HERPESIN [Concomitant]
     Active Substance: ACYCLOVIR
     Indication: PROPHYLAXIS
     Dates: start: 20121030, end: 20121112
  3. MEXALEN [Concomitant]
     Active Substance: ACETAMINOPHEN
     Indication: PROPHYLAXIS
     Dates: start: 20120213, end: 20121030
  4. OBINUTUZUMAB. [Suspect]
     Active Substance: OBINUTUZUMAB
     Indication: NON-HODGKIN^S LYMPHOMA UNSPECIFIED HISTOLOGY INDOLENT
     Dosage: LAST VOLUME TAKEN 250 ML, LAST DOSE CONCENTRATION 4 MG/ML, LAST DOSE PRIOR TO SAE 13/NOV/2012?LAST V
     Route: 042
     Dates: start: 20120213
  5. CONTRAMAL [Concomitant]
     Active Substance: TRAMADOL HYDROCHLORIDE
     Indication: ABDOMINAL PAIN
     Dates: start: 20120410, end: 20121112
  6. FENISTIL [Concomitant]
     Active Substance: DIMETHINDENE
     Indication: PROPHYLAXIS
     Dates: start: 20120213, end: 20121030
  7. PREDNISOLONE. [Suspect]
     Active Substance: PREDNISOLONE
     Indication: NON-HODGKIN^S LYMPHOMA UNSPECIFIED HISTOLOGY INDOLENT
     Dosage: LAST DOSE TAKEN:  100 MG. MOST RECENT DOSE: 03/JUL/2012
     Route: 048

REACTIONS (5)
  - Pyrexia [Recovered/Resolved]
  - Mental status changes [Unknown]
  - Deafness [Unknown]
  - Epilepsy [Recovered/Resolved with Sequelae]
  - Pneumonia [Fatal]

NARRATIVE: CASE EVENT DATE: 20121112
